FAERS Safety Report 9649511 (Version 2)
Quarter: 2013Q4

REPORT INFORMATION
  Report Type: Spontaneous
  Country: US (occurrence: US)
  Receive Date: 20131028
  Receipt Date: 20131205
  Transmission Date: 20140711
  Serious: Yes (Disabling, Other)
  Sender: FDA-Public Use
  Company Number: US-CELGENEUS-163-21880-13103987

PATIENT
  Age: 74 Year
  Sex: Male
  Weight: 59.2 kg

DRUGS (10)
  1. REVLIMID [Suspect]
     Indication: BLADDER CANCER
     Dosage: 10 MILLIGRAM
     Route: 048
     Dates: start: 20130529, end: 20131022
  2. AMLODIPINE [Concomitant]
     Indication: HYPERTENSION
     Dosage: 10 MILLIGRAM
     Route: 048
     Dates: start: 2003
  3. ATORVASTATIN [Concomitant]
     Indication: HYPERCHOLESTEROLAEMIA
     Dosage: 80 MILLIGRAM
     Route: 048
     Dates: start: 2003
  4. DABIGATRAN [Concomitant]
     Indication: ARRHYTHMIA PROPHYLAXIS
     Dosage: 150 MILLIGRAM
     Route: 048
     Dates: start: 2012
  5. HCTZ [Concomitant]
     Indication: HYPERTENSION
     Dosage: 25 MILLIGRAM
     Route: 048
     Dates: start: 2003
  6. HCTZ [Concomitant]
     Indication: HYPERTENSION
  7. METOPROLOL [Concomitant]
     Indication: HYPERTENSION
     Dosage: 50 MILLIGRAM
     Route: 048
     Dates: start: 2003
  8. METOPROLOL [Concomitant]
     Indication: HYPERTENSION
  9. TAMSULOSIN [Concomitant]
     Indication: POLLAKIURIA
     Dosage: .4 MILLIGRAM
     Route: 048
     Dates: start: 2005
  10. TOLTERODINE [Concomitant]
     Indication: POLLAKIURIA
     Dosage: 4 MILLIGRAM
     Route: 048
     Dates: start: 2007

REACTIONS (1)
  - Laryngeal cancer [Not Recovered/Not Resolved]
